FAERS Safety Report 24184370 (Version 1)
Quarter: 2024Q3

REPORT INFORMATION
  Report Type: Spontaneous
  Country: US (occurrence: None)
  Receive Date: 20240807
  Receipt Date: 20240807
  Transmission Date: 20241017
  Serious: Yes (Other)
  Sender: Public
  Company Number: None

PATIENT
  Sex: Female

DRUGS (12)
  1. IMATINIB MESYLATE [Suspect]
     Active Substance: IMATINIB MESYLATE
     Indication: Chronic myeloid leukaemia (in remission)
     Dosage: FREQUENCY : DAILY;?
     Route: 048
     Dates: start: 20231010
  2. IMATINIB MESYLATE [Suspect]
     Active Substance: IMATINIB MESYLATE
     Indication: Philadelphia chromosome positive
  3. ALBUTEROL SULFATE [Concomitant]
     Active Substance: ALBUTEROL SULFATE
  4. ASPIRIN EC TAB 81 MG [Concomitant]
  5. BIOTIN TAB 10MG [Concomitant]
  6. CULTURELLE [Concomitant]
     Active Substance: LACTOBACILLUS RHAMNOSUS
  7. DICLOFENAC GEL [Concomitant]
  8. ESTRADIOL CRE 0.01% [Concomitant]
  9. FLUCONAZOLE TAB 150MG [Concomitant]
  10. HYDROXYZ HCL TAB 50MG [Concomitant]
  11. IMATINIB MESYLATE [Concomitant]
     Active Substance: IMATINIB MESYLATE
  12. IMATINIB MESYLATE [Concomitant]
     Active Substance: IMATINIB MESYLATE

REACTIONS (2)
  - Cerebrovascular accident [None]
  - Therapy interrupted [None]
